FAERS Safety Report 19241244 (Version 2)
Quarter: 2021Q2

REPORT INFORMATION
  Report Type: Spontaneous
  Country: US (occurrence: US)
  Receive Date: 20210510
  Receipt Date: 20210622
  Transmission Date: 20210717
  Serious: No
  Sender: FDA-Public Use
  Company Number: US-ASTRAZENECA-2021A338615

PATIENT
  Age: 22256 Day
  Sex: Male
  Weight: 96.2 kg

DRUGS (3)
  1. FASENRA [Suspect]
     Active Substance: BENRALIZUMAB
     Indication: DYSPNOEA
     Route: 058
     Dates: start: 20210317
  2. FASENRA [Suspect]
     Active Substance: BENRALIZUMAB
     Indication: MULTIPLE ALLERGIES
     Route: 058
     Dates: start: 20210317
  3. FASENRA [Suspect]
     Active Substance: BENRALIZUMAB
     Indication: ASTHMA
     Route: 058
     Dates: start: 20210317

REACTIONS (4)
  - Incorrect dose administered by device [Not Recovered/Not Resolved]
  - Device leakage [Unknown]
  - Intentional device misuse [Not Recovered/Not Resolved]
  - Feeling abnormal [Not Recovered/Not Resolved]

NARRATIVE: CASE EVENT DATE: 20210317
